FAERS Safety Report 14725575 (Version 1)
Quarter: 2018Q2

REPORT INFORMATION
  Report Type: Spontaneous
  Country: US (occurrence: US)
  Receive Date: 20180406
  Receipt Date: 20180406
  Transmission Date: 20180711
  Serious: Yes (Other)
  Sender: FDA-Public Use
  Company Number: US-ALVOGEN-2018-ALVOGEN-095742

PATIENT
  Age: 10 Month
  Sex: Male
  Weight: 19.4 kg

DRUGS (3)
  1. ATENOLOL. [Suspect]
     Active Substance: ATENOLOL
     Indication: PRODUCT USED FOR UNKNOWN INDICATION
  2. ASCORBIC ACID/COLECALCIFEROL/CYANOCOBALAMIN/FOLIC ACID/NICOTINAMIDE/PYRIDOXINE HYDROCHLORIDE/RETINOL [Concomitant]
     Indication: PRODUCT USED FOR UNKNOWN INDICATION
  3. SYNAGIS [Suspect]
     Active Substance: PALIVIZUMAB
     Indication: PROPHYLAXIS
     Dosage: 15 MG/KG
     Route: 030
     Dates: start: 20171206

REACTIONS (1)
  - Bronchiolitis [Unknown]

NARRATIVE: CASE EVENT DATE: 201802
